FAERS Safety Report 6654457-6 (Version None)
Quarter: 2010Q1

REPORT INFORMATION
  Report Type: 
  Country: None (occurrence: None)
  Receive Date: 20100326
  Receipt Date: 20100317
  Transmission Date: 20100710
  Serious: Yes (Life-Threatening)
  Sender: FDA-Public Use
  Company Number: GXKR2010GR03163

PATIENT
  Age: 22 Year
  Sex: Male

DRUGS (8)
  1. METHOTREXATE [Suspect]
     Indication: B-CELL LYMPHOMA
  2. DOXORUBICIN (NGX) [Suspect]
     Indication: B-CELL LYMPHOMA
     Route: 065
  3. VINCRISTINE (NGX) [Suspect]
     Indication: B-CELL LYMPHOMA
     Route: 065
  4. BLEOMYCIN (NGX) [Suspect]
     Indication: B-CELL LYMPHOMA
     Route: 065
  5. PREDNISONE TAB [Suspect]
     Indication: B-CELL LYMPHOMA
     Route: 065
  6. MEPREDNISONE [Suspect]
     Indication: B-CELL LYMPHOMA
     Dosage: 54 MG, QD
     Route: 048
  7. CYCLOPHOSPHAMIDE [Suspect]
     Indication: B-CELL LYMPHOMA
     Route: 065
  8. GRANULOCYTE COLONY STIMULATING FACTOR [Suspect]
     Indication: B-CELL LYMPHOMA
     Route: 065

REACTIONS (8)
  - APHASIA [None]
  - BONE MARROW NECROSIS [None]
  - CONUS MEDULLARIS SYNDROME [None]
  - DYSPNOEA [None]
  - FAT EMBOLISM [None]
  - LUNG DISORDER [None]
  - MENTAL STATUS CHANGES [None]
  - MUSCULAR WEAKNESS [None]
